FAERS Safety Report 8516516 (Version 2)
Quarter: 2013Q3

REPORT INFORMATION
  Report Type: Spontaneous
  Country: US (occurrence: US)
  Receive Date: 20120417
  Receipt Date: 20130903
  Transmission Date: 20140515
  Serious: No
  Sender: FDA-Public Use
  Company Number: US-ASTRAZENECA-2011SE27072

PATIENT
  Age: 59 Year
  Sex: Female
  Weight: 113.4 kg

DRUGS (8)
  1. NEXIUM [Suspect]
     Indication: GASTROOESOPHAGEAL REFLUX DISEASE
     Route: 048
  2. NEXIUM [Suspect]
     Indication: GASTROOESOPHAGEAL REFLUX DISEASE
     Route: 048
  3. NEXIUM [Suspect]
     Indication: GASTROOESOPHAGEAL REFLUX DISEASE
     Route: 048
     Dates: start: 2006
  4. OTHER PPIS IN PLACE OF NEXIUM [Suspect]
     Route: 065
  5. ZOCOR [Concomitant]
     Indication: BLOOD CHOLESTEROL INCREASED
  6. ASPIRIN [Concomitant]
  7. PREVACID [Concomitant]
  8. PEPCID [Concomitant]

REACTIONS (7)
  - Back pain [Unknown]
  - Chest pain [Unknown]
  - Hyperaesthesia [Unknown]
  - Glucose tolerance impaired [Unknown]
  - Pain [Unknown]
  - Drug dose omission [Unknown]
  - Off label use [Unknown]
